FAERS Safety Report 6713633-4 (Version None)
Quarter: 2010Q2

REPORT INFORMATION
  Report Type: 
  Country: None (occurrence: None)
  Receive Date: 20100506
  Receipt Date: 20100429
  Transmission Date: 20101027
  Serious: Yes (Other)
  Sender: FDA-Public Use
  Company Number: B0565327A

PATIENT
  Age: 60 Year
  Sex: Male

DRUGS (6)
  1. AMOXICILLIN [Suspect]
     Indication: LOWER RESPIRATORY TRACT INFECTION
     Route: 048
     Dates: start: 20090221, end: 20090221
  2. PABRINEX [Suspect]
     Indication: ALCOHOL WITHDRAWAL SYNDROME
     Route: 042
     Dates: start: 20090221, end: 20090221
  3. OMEPRAZOLE [Concomitant]
     Route: 048
  4. CREON [Concomitant]
     Route: 048
  5. DIAZEPAM [Concomitant]
     Indication: ALCOHOL WITHDRAWAL SYNDROME
     Route: 048
     Dates: start: 20090221
  6. SALBUTAMOL [Concomitant]
     Route: 055
     Dates: start: 20090221

REACTIONS (3)
  - DRUG HYPERSENSITIVITY [None]
  - PERIORBITAL OEDEMA [None]
  - URTICARIA [None]
